FAERS Safety Report 9738556 (Version 1)
Quarter: 2013Q4

REPORT INFORMATION
  Report Type: Spontaneous
  Country: US (occurrence: US)
  Receive Date: 20131209
  Receipt Date: 20131209
  Transmission Date: 20140711
  Serious: Yes (Disabling)
  Sender: FDA-Public Use
  Company Number: US-GE HEALTHCARE MEDICAL DIAGNOSTICS-OSCN-PR-1311S-0095

PATIENT
  Age: 51 Year
  Sex: Male

DRUGS (12)
  1. OMNISCAN [Suspect]
     Indication: RENAL VESSEL DISORDER
     Route: 042
     Dates: start: 20040727, end: 20040727
  2. ROPINIROLE [Concomitant]
  3. IRON SUCROSE [Concomitant]
  4. VANICREAM [Concomitant]
  5. EPOGEN [Concomitant]
     Dates: start: 2003, end: 2004
  6. EPOGEN [Concomitant]
     Dates: start: 2006, end: 2007
  7. RENAGEL [Concomitant]
     Dates: start: 2003, end: 2006
  8. CALCITROL [Concomitant]
     Dates: start: 2006
  9. CINACALCET [Concomitant]
     Dates: start: 2006, end: 2007
  10. ZEMPLAR [Concomitant]
     Dates: start: 2007
  11. SENSIPAR [Concomitant]
  12. VASELINE [Concomitant]
     Route: 061

REACTIONS (1)
  - Nephrogenic systemic fibrosis [Not Recovered/Not Resolved]
